FAERS Safety Report 20803640 (Version 2)
Quarter: 2022Q2

REPORT INFORMATION
  Report Type: Report from Study
  Country: US (occurrence: US)
  Receive Date: 20220509
  Receipt Date: 20220518
  Transmission Date: 20220720
  Serious: Yes (Other)
  Sender: FDA-Public Use
  Company Number: US-JAZZ-2021-US-026949

PATIENT
  Age: 65 Year
  Sex: Female

DRUGS (19)
  1. XYREM [Suspect]
     Active Substance: SODIUM OXYBATE
     Indication: Narcolepsy
     Dosage: UNK
     Route: 048
  2. LEVOTHYROXINE [Concomitant]
     Active Substance: LEVOTHYROXINE
     Indication: Product used for unknown indication
     Dosage: 0000
     Dates: start: 20150122
  3. THYRONINE [Concomitant]
     Indication: Product used for unknown indication
     Dosage: 0000
     Dates: start: 20150122
  4. CLOTRIMAZOLE [Concomitant]
     Active Substance: CLOTRIMAZOLE
     Indication: Product used for unknown indication
     Dosage: 0000
     Dates: start: 20150831
  5. CHOLECALCIFEROL [Concomitant]
     Active Substance: CHOLECALCIFEROL
     Indication: Product used for unknown indication
     Dosage: 0000
     Dates: start: 20150908
  6. CALCIUM CARBONATE\CHOLECALCIFEROL [Concomitant]
     Active Substance: CALCIUM CARBONATE\CHOLECALCIFEROL
     Indication: Product used for unknown indication
     Dosage: 0000
     Dates: start: 20150908
  7. MAGNESIUM GLUCONATE [Concomitant]
     Active Substance: MAGNESIUM GLUCONATE
     Indication: Product used for unknown indication
     Dosage: 0000
     Dates: start: 20150908
  8. MILK OF MAGNESIA [Concomitant]
     Active Substance: MAGNESIUM HYDROXIDE
     Indication: Product used for unknown indication
     Dosage: 0000
     Dates: start: 20150908
  9. FISH OIL [Concomitant]
     Active Substance: FISH OIL
     Indication: Product used for unknown indication
     Dosage: 0000
     Dates: start: 20150908
  10. PRAVASTATIN SODIUM [Concomitant]
     Active Substance: PRAVASTATIN SODIUM
     Indication: Product used for unknown indication
     Dosage: 0000
     Dates: start: 20160323
  11. HYDROCORTISONE [Concomitant]
     Active Substance: HYDROCORTISONE
     Indication: Product used for unknown indication
     Dosage: 0000
     Dates: start: 20160604
  12. BASIS [Concomitant]
     Indication: Product used for unknown indication
     Dosage: 0000
     Dates: start: 20170217
  13. LORATADINE [Concomitant]
     Active Substance: LORATADINE
     Indication: Product used for unknown indication
     Dosage: 0000
     Dates: start: 20171003
  14. ADEMETIONINE [Concomitant]
     Active Substance: ADEMETIONINE
     Indication: Product used for unknown indication
     Dosage: 0010
     Dates: start: 20180222
  15. ACETYL L-CARNITINE [ACETYLCARNITINE] [Concomitant]
     Indication: Product used for unknown indication
     Dosage: 0010
     Dates: start: 20180222
  16. SUNOSI [Concomitant]
     Active Substance: SOLRIAMFETOL
     Indication: Product used for unknown indication
     Dosage: 0010
     Dates: start: 20191216
  17. ZINC PICOLINATE [Concomitant]
     Active Substance: ZINC PICOLINATE
     Indication: Product used for unknown indication
     Dosage: 0000
     Dates: start: 20200404
  18. MIDODRINE HYDROCHLORIDE [Concomitant]
     Active Substance: MIDODRINE HYDROCHLORIDE
     Indication: Product used for unknown indication
     Dosage: 0000
     Dates: start: 20210521
  19. ADDERALL [Concomitant]
     Active Substance: AMPHETAMINE ASPARTATE\AMPHETAMINE SULFATE\DEXTROAMPHETAMINE SACCHARATE\DEXTROAMPHETAMINE SULFATE
     Indication: Product used for unknown indication
     Dosage: UNK
     Dates: start: 20211104

REACTIONS (8)
  - Facial bones fracture [Unknown]
  - Macular degeneration [Unknown]
  - Rib fracture [Unknown]
  - Autoimmune thyroiditis [Unknown]
  - Osteopenia [Unknown]
  - Methylenetetrahydrofolate reductase gene mutation [Unknown]
  - Rash [Unknown]
  - Fall [Unknown]

NARRATIVE: CASE EVENT DATE: 20150908
